FAERS Safety Report 7915599-8 (Version None)
Quarter: 2011Q4

REPORT INFORMATION
  Report Type: 
  Country: None (occurrence: None)
  Receive Date: 20111115
  Receipt Date: 20110922
  Transmission Date: 20120403
  Serious: Yes (Other)
  Sender: FDA-Public Use
  Company Number: US-BRISTOL-MYERS SQUIBB COMPANY-15882913

PATIENT
  Age: 70 Year
  Sex: Male
  Weight: 76 kg

DRUGS (2)
  1. BENADRYL [Concomitant]
     Indication: PREMEDICATION
     Route: 042
     Dates: start: 20110622
  2. YERVOY [Suspect]
     Indication: MALIGNANT MELANOMA
     Dosage: EARLIER RECEIVED IN A STUDY ON 21APR2010 AND 05MAY2010.
     Route: 042
     Dates: start: 20110622

REACTIONS (2)
  - NEUROPATHY PERIPHERAL [None]
  - MUSCULOSKELETAL PAIN [None]
